FAERS Safety Report 9218040 (Version 1)
Quarter: 2013Q2

REPORT INFORMATION
  Report Type: Spontaneous
  Country: US (occurrence: US)
  Receive Date: 20130408
  Receipt Date: 20130408
  Transmission Date: 20140414
  Serious: Yes (Hospitalization)
  Sender: FDA-Public Use
  Company Number: US-GLAXOSMITHKLINE-A0700840A

PATIENT
  Age: 59 Year
  Sex: Female
  Weight: 74.1 kg

DRUGS (7)
  1. AVANDIA [Suspect]
     Indication: TYPE 2 DIABETES MELLITUS
     Dosage: 4MG TWICE PER DAY
     Route: 048
     Dates: start: 20050523, end: 2005
  2. AVANDAMET [Suspect]
     Indication: TYPE 2 DIABETES MELLITUS
     Route: 048
     Dates: start: 200301, end: 20060708
  3. LISINOPRIL [Concomitant]
     Dates: start: 20010604
  4. LIPITOR [Concomitant]
  5. ZETIA [Concomitant]
  6. PREMPRO [Concomitant]
  7. METFORMIN [Concomitant]

REACTIONS (2)
  - Myocardial infarction [Unknown]
  - Coronary artery disease [Unknown]
